FAERS Safety Report 20338475 (Version 1)
Quarter: 2022Q1

REPORT INFORMATION
  Report Type: Spontaneous
  Country: None (occurrence: A1)
  Receive Date: 20220115
  Receipt Date: 20220115
  Transmission Date: 20220423
  Serious: Yes (Death, Hospitalization)
  Sender: FDA-Public Use
  Company Number: A1-Acella Pharmaceuticals, LLC-2123969

PATIENT
  Age: 88 Year
  Sex: Male

DRUGS (1)
  1. DOXYCYCLINE [Suspect]
     Active Substance: DOXYCYCLINE
     Indication: Abscess limb
     Route: 065

REACTIONS (8)
  - Oliguria [Unknown]
  - Rash pruritic [Unknown]
  - Tubulointerstitial nephritis [Unknown]
  - Hypervolaemia [Unknown]
  - Uraemic encephalopathy [Unknown]
  - Mental status changes [Unknown]
  - Post infection glomerulonephritis [Unknown]
  - Death [Fatal]
